FAERS Safety Report 8496480-5 (Version None)
Quarter: 2012Q3

REPORT INFORMATION
  Report Type: 
  Country: None (occurrence: None)
  Receive Date: 20120709
  Receipt Date: 20120626
  Transmission Date: 20120928
  Serious: Yes (Hospitalization)
  Sender: FDA-Public Use
  Company Number: GB-TEVA-341654ISR

PATIENT
  Age: 64 Year
  Sex: Male

DRUGS (8)
  1. BACLOFEN [Suspect]
     Indication: HEMIPARESIS
     Dosage: 30 MILLIGRAM;
     Route: 042
     Dates: start: 20100101, end: 20120501
  2. VITAMIN B COMPOUND STRONG [Concomitant]
     Dosage: LONG-TERM THERAPY
     Route: 065
  3. OMEPRAZOLE [Concomitant]
     Dosage: 40 MILLIGRAM; LONG-TERM THERAPY
     Route: 065
  4. ASPIRIN [Concomitant]
     Dosage: 75 MILLIGRAM; LONG-TERM THERAPY
     Route: 065
  5. NORTRIPTYLINE HCL [Concomitant]
     Dosage: 10 MILLIGRAM; LONG-TERM THERAPY
     Route: 065
  6. ACETAMINOPHEN AND CODEINE PHOSPHATE [Concomitant]
     Dosage: 8/500 MG 1-2 QID PRN (4 TIMES A DAY/AS NEEDED) LONG-TERM THERAPY
  7. CARVEDILOL [Concomitant]
     Dosage: 25 MILLIGRAM; LONG-TERM THERAPY
     Route: 065
  8. DIPYRIDAMOLE [Concomitant]
     Dosage: 200 MILLIGRAM; LONG-TERM THERAPY
     Route: 065

REACTIONS (5)
  - WITHDRAWAL SYNDROME [None]
  - RENAL FAILURE ACUTE [None]
  - CONFUSIONAL STATE [None]
  - PARANOIA [None]
  - DELUSION [None]
